FAERS Safety Report 17850713 (Version 1)
Quarter: 2020Q2

REPORT INFORMATION
  Report Type: Spontaneous
  Country: US (occurrence: US)
  Receive Date: 20200602
  Receipt Date: 20200602
  Transmission Date: 20200714
  Serious: No
  Sender: FDA-Public Use
  Company Number: US-SA-2020SA134647

PATIENT

DRUGS (4)
  1. CABLIVI [Suspect]
     Active Substance: CAPLACIZUMAB-YHDP
     Route: 058
  2. CABLIVI [Suspect]
     Active Substance: CAPLACIZUMAB-YHDP
     Route: 058
  3. CABLIVI [Suspect]
     Active Substance: CAPLACIZUMAB-YHDP
     Route: 058
  4. CABLIVI [Suspect]
     Active Substance: CAPLACIZUMAB-YHDP
     Route: 058

REACTIONS (1)
  - Feeling hot [Recovered/Resolved]
